FAERS Safety Report 5088753-3 (Version None)
Quarter: 2006Q3

REPORT INFORMATION
  Report Type: 
  Country: None (occurrence: None)
  Receive Date: 20060825
  Receipt Date: 20060818
  Transmission Date: 20061208
  Serious: Yes (Hospitalization)
  Sender: FDA-Public Use
  Company Number: FR-GLAXOSMITHKLINE-B0435503A

PATIENT
  Sex: Male

DRUGS (3)
  1. SERETIDE [Suspect]
  2. RITONAVIR [Suspect]
     Indication: HIV INFECTION
     Route: 048
  3. ANTIRETROVIRAL MEDICATIONS [Concomitant]
     Indication: HIV INFECTION

REACTIONS (2)
  - ADRENAL INSUFFICIENCY [None]
  - DRUG INTERACTION [None]
